FAERS Safety Report 6195999-X (Version None)
Quarter: 2009Q2

REPORT INFORMATION
  Report Type: 
  Country: None (occurrence: None)
  Receive Date: 20090520
  Receipt Date: 20031126
  Transmission Date: 20091009
  Serious: Yes (Death, Hospitalization)
  Sender: FDA-Public Use
  Company Number: NL-ROCHE-597586

PATIENT
  Sex: Male

DRUGS (6)
  1. CAPECITABINE [Suspect]
     Indication: COLORECTAL CANCER
     Dosage: GIVEN ON DAY 1-14 PER THREE WEEK CYCLE, CUMULATIVE DOSE:11.00 MG
     Route: 048
     Dates: start: 20030405, end: 20030413
  2. IRINOTECAN HCL [Suspect]
     Indication: COLORECTAL CANCER
     Route: 042
     Dates: start: 20030405, end: 20030413
  3. PANTOZOL [Concomitant]
     Route: 048
  4. DEXAMETHASONE 4MG TAB [Concomitant]
     Route: 048
  5. TROPISETRON [Concomitant]
     Route: 048
  6. TOLBUTAMIDE [Concomitant]
     Route: 048

REACTIONS (2)
  - DEHYDRATION [None]
  - PULMONARY EMBOLISM [None]
